FAERS Safety Report 9758897 (Version 1)
Quarter: 2013Q4

REPORT INFORMATION
  Report Type: Spontaneous
  Country: US (occurrence: None)
  Receive Date: 20131216
  Receipt Date: 20131216
  Transmission Date: 20140711
  Serious: Yes (Other)
  Sender: FDA-Public Use
  Company Number: 163-POMAL-13050577(0)

PATIENT
  Age: 78 Year
  Sex: Male

DRUGS (8)
  1. POMALYST (POMALIDOMIDE) (CAPSULES) [Suspect]
     Indication: PLASMA CELL MYELOMA
     Dosage: 1 MG, 1 IN 1 D, PO
  2. GLIPIZIDE (GLIPIZIDE) (UNKNOWN) [Concomitant]
  3. ENALAPRIL (ENALAPRIL) (UNKNOWN) [Concomitant]
  4. ATENOLOL (ATENOLOL) (UNKNOWN) [Concomitant]
  5. NORVASC (AMLODIPINE BESILATE) (UNKNOWN) [Concomitant]
  6. TERAZOSIN (TERAZOSIN) (UNKNOWN) [Concomitant]
  7. CRESTOR (ROSUVASTATIN) (UNKNOWN) [Concomitant]
  8. ASPIRIN (ACETYLSALICYLIC ACID) (UNKNOWN) (ACETYLSALICYLIC ACID) [Concomitant]

REACTIONS (1)
  - Dermatitis allergic [None]
